FAERS Safety Report 21025931 (Version 4)
Quarter: 2022Q4

REPORT INFORMATION
  Report Type: Report from Study
  Country: US (occurrence: US)
  Receive Date: 20220630
  Receipt Date: 20221122
  Transmission Date: 20230113
  Serious: Yes (Other)
  Sender: FDA-Public Use
  Company Number: US-ABBVIE-22K-163-4450099-00

PATIENT
  Sex: Male
  Weight: 91.625 kg

DRUGS (5)
  1. HUMIRA [Suspect]
     Active Substance: ADALIMUMAB
     Indication: Ankylosing spondylitis
     Route: 058
     Dates: start: 202105
  2. HUMIRA [Suspect]
     Active Substance: ADALIMUMAB
     Indication: Arthritis
  3. Pfizer/BioNTech Covid 19 vaccine [Concomitant]
     Indication: COVID-19 immunisation
     Dosage: PFIZER
     Route: 030
     Dates: start: 202107, end: 202107
  4. Pfizer/BioNTech Covid 19 vaccine [Concomitant]
     Indication: COVID-19 immunisation
     Dosage: PFIZER
     Route: 030
     Dates: start: 20210401, end: 20210401
  5. Pfizer/BioNTech Covid 19 vaccine [Concomitant]
     Indication: COVID-19 immunisation
     Dosage: PFIZER
     Route: 030
     Dates: start: 202103, end: 202103

REACTIONS (11)
  - Off label use [Unknown]
  - Lacrimation increased [Not Recovered/Not Resolved]
  - Lip disorder [Not Recovered/Not Resolved]
  - Intervertebral disc disorder [Not Recovered/Not Resolved]
  - Dermatitis allergic [Not Recovered/Not Resolved]
  - Dry eye [Not Recovered/Not Resolved]
  - Lip pain [Recovering/Resolving]
  - Oral discomfort [Recovering/Resolving]
  - Eyelid margin crusting [Unknown]
  - Lip swelling [Recovering/Resolving]
  - Adverse food reaction [Recovering/Resolving]

NARRATIVE: CASE EVENT DATE: 20200101
